FAERS Safety Report 23206379 (Version 1)
Quarter: 2023Q4

REPORT INFORMATION
  Report Type: Spontaneous
  Country: FR (occurrence: FR)
  Receive Date: 20231120
  Receipt Date: 20231120
  Transmission Date: 20240110
  Serious: Yes (Other)
  Sender: FDA-Public Use
  Company Number: FR-PFIZER INC-2018254079

PATIENT
  Age: 39 Year
  Sex: Female

DRUGS (6)
  1. CYCLOPHOSPHAMIDE [Suspect]
     Active Substance: CYCLOPHOSPHAMIDE
     Indication: Breast cancer
     Dosage: 500 MG/M2, CYCLIC (6 CYCLES)
     Route: 065
  2. FLUOROURACIL [Suspect]
     Active Substance: FLUOROURACIL
     Indication: Breast cancer
     Dosage: 500 MG/M2, CYCLIC (6 CYCLES)
     Route: 065
  3. IDARUBICIN HYDROCHLORIDE [Suspect]
     Active Substance: IDARUBICIN HYDROCHLORIDE
     Indication: Product used for unknown indication
     Dosage: 8 MG/M2, CYCLIC (2+4)
     Route: 065
  4. IDARUBICIN HYDROCHLORIDE [Suspect]
     Active Substance: IDARUBICIN HYDROCHLORIDE
     Indication: Acute myeloid leukaemia
     Dosage: 8 MG/M2, CYCLIC (5+7)
     Route: 065
     Dates: start: 200801
  5. CYTARABINE [Concomitant]
     Active Substance: CYTARABINE
     Indication: Acute myeloid leukaemia
     Dosage: 200 MG/M2, CYCLIC (5+7)
     Route: 065
     Dates: start: 200801
  6. CYTARABINE [Concomitant]
     Active Substance: CYTARABINE
     Indication: Product used for unknown indication
     Dosage: 2000 MG/M2, CYCLIC (2+4)
     Route: 065

REACTIONS (3)
  - Second primary malignancy [Unknown]
  - Acute myeloid leukaemia [Unknown]
  - Cardiotoxicity [Unknown]
